FAERS Safety Report 11863452 (Version 1)
Quarter: 2015Q4

REPORT INFORMATION
  Report Type: Report from Study
  Country: AU (occurrence: AU)
  Receive Date: 20151223
  Receipt Date: 20151223
  Transmission Date: 20160305
  Serious: Yes (Death, Other)
  Sender: FDA-Public Use
  Company Number: AU-CELGENE-AUS-2015123091

PATIENT

DRUGS (3)
  1. MARIZOMIB [Concomitant]
     Active Substance: MARIZOMIB
     Indication: PLASMA CELL MYELOMA
     Route: 041
  2. POMALIDOMIDE [Suspect]
     Active Substance: POMALIDOMIDE
     Indication: PLASMA CELL MYELOMA
     Route: 048
  3. DEXAMETHASONE. [Concomitant]
     Active Substance: DEXAMETHASONE
     Indication: PLASMA CELL MYELOMA
     Route: 041

REACTIONS (19)
  - Pneumonia [Unknown]
  - Febrile neutropenia [Unknown]
  - Oedema peripheral [Unknown]
  - Dyspnoea [Unknown]
  - Diarrhoea [Unknown]
  - Sepsis [Fatal]
  - Neutropenia [Unknown]
  - Insomnia [Unknown]
  - Plasma cell myeloma [Fatal]
  - Hypokalaemia [Unknown]
  - Constipation [Unknown]
  - Muscle spasms [Unknown]
  - Back pain [Unknown]
  - Upper respiratory tract infection [Unknown]
  - Anaemia [Unknown]
  - Thrombocytopenia [Unknown]
  - Neuropathy peripheral [Unknown]
  - Nausea [Unknown]
  - Fatigue [Unknown]
